FAERS Safety Report 9867128 (Version 1)
Quarter: 2014Q1

REPORT INFORMATION
  Report Type: Spontaneous
  Country: US (occurrence: US)
  Receive Date: 20140204
  Receipt Date: 20140204
  Transmission Date: 20141002
  Serious: Yes (Other)
  Sender: FDA-Public Use
  Company Number: US-009507513-1401USA013133

PATIENT
  Age: 23 Year
  Sex: Female
  Weight: 94.79 kg

DRUGS (1)
  1. IMPLANON [Suspect]
     Indication: CONTRACEPTION
     Dosage: 1 ROD UP TO 3 YEARS
     Route: 059
     Dates: start: 20110203

REACTIONS (6)
  - Cholecystectomy [Unknown]
  - Appetite disorder [Unknown]
  - Muscle spasms [Unknown]
  - Hunger [Unknown]
  - Weight increased [Unknown]
  - Alopecia [Unknown]
